FAERS Safety Report 5223039-5 (Version None)
Quarter: 2007Q1

REPORT INFORMATION
  Report Type: 
  Country: None (occurrence: None)
  Receive Date: 20070129
  Receipt Date: 20070117
  Transmission Date: 20070707
  Serious: Yes (Other)
  Sender: FDA-Public Use
  Company Number: DE-PFIZER INC-2007004682

PATIENT
  Age: 39 Year
  Sex: Female

DRUGS (3)
  1. CLINDAMYCIN HCL [Suspect]
     Indication: ERYSIPELAS
     Route: 048
  2. SOBELIN IV [Suspect]
     Indication: ERYSIPELAS
     Route: 042
  3. SOBELIN IV [Suspect]
     Route: 042

REACTIONS (2)
  - DRUG EFFECT DECREASED [None]
  - MYOCARDITIS BACTERIAL [None]
